FAERS Safety Report 6818294-1 (Version None)
Quarter: 2010Q3

REPORT INFORMATION
  Report Type: 
  Country: None (occurrence: None)
  Receive Date: 20100706
  Receipt Date: 20080115
  Transmission Date: 20110219
  Serious: No
  Sender: FDA-Public Use
  Company Number: US-PFIZER INC-2007091740

PATIENT
  Age: 47 Year
  Sex: Female

DRUGS (1)
  1. ZITHROMAX [Suspect]
     Indication: OROPHARYNGEAL PAIN
     Dates: start: 20071009, end: 20071014

REACTIONS (1)
  - ORAL FUNGAL INFECTION [None]
